FAERS Safety Report 15897739 (Version 1)
Quarter: 2019Q1

REPORT INFORMATION
  Report Type: Spontaneous
  Country: US (occurrence: US)
  Receive Date: 20190201
  Receipt Date: 20190201
  Transmission Date: 20190417
  Serious: No
  Sender: FDA-Public Use
  Company Number: US-SHIRE-US201903005

PATIENT
  Sex: Male

DRUGS (3)
  1. VYVANSE [Suspect]
     Active Substance: LISDEXAMFETAMINE DIMESYLATE
     Indication: OFF LABEL USE
     Dosage: 60 MILLIGRAM, 1X/DAY:QD, AT 12 NOON AS NEEDED
     Route: 048
  2. ADDERALL [Concomitant]
     Active Substance: AMPHETAMINE ASPARTATE\AMPHETAMINE SULFATE\DEXTROAMPHETAMINE SACCHARATE\DEXTROAMPHETAMINE SULFATE
     Indication: PRODUCT USED FOR UNKNOWN INDICATION
  3. VYVANSE [Suspect]
     Active Substance: LISDEXAMFETAMINE DIMESYLATE
     Indication: NARCOLEPSY
     Dosage: 60 MILLIGRAM, 2X/DAY:BID
     Route: 048

REACTIONS (4)
  - Off label use [Unknown]
  - Inappropriate schedule of product administration [Unknown]
  - Inability to afford medication [Unknown]
  - Impaired driving ability [Unknown]
